FAERS Safety Report 15114275 (Version 1)
Quarter: 2018Q3

REPORT INFORMATION
  Report Type: Spontaneous
  Country: FR (occurrence: FR)
  Receive Date: 20180706
  Receipt Date: 20180706
  Transmission Date: 20181010
  Serious: Yes (Hospitalization)
  Sender: FDA-Public Use
  Company Number: PHHY2018FR038150

PATIENT
  Age: 70 Year
  Sex: Female
  Weight: 99.5 kg

DRUGS (3)
  1. DEXAFREE [Suspect]
     Active Substance: DEXAMETHASONE SODIUM PHOSPHATE
     Indication: CATARACT OPERATION
     Route: 047
  2. AZARGA [Suspect]
     Active Substance: BRINZOLAMIDE\TIMOLOL MALEATE
     Indication: CATARACT OPERATION
     Route: 047
  3. INDOCOLLYRE [Suspect]
     Active Substance: INDOMETHACIN
     Indication: CATARACT OPERATION
     Route: 047

REACTIONS (1)
  - Vascular purpura [Recovering/Resolving]

NARRATIVE: CASE EVENT DATE: 20180319
